FAERS Safety Report 11378764 (Version 2)
Quarter: 2015Q3

REPORT INFORMATION
  Report Type: Spontaneous
  Country: US (occurrence: None)
  Receive Date: 20150812
  Receipt Date: 20150908
  Transmission Date: 20151125
  Serious: Yes (Hospitalization, Other)
  Sender: FDA-Public Use
  Company Number: DEP_03290_2015

PATIENT
  Age: 38 Year
  Sex: Female
  Weight: 71.22 kg

DRUGS (9)
  1. FLECTOR [Concomitant]
     Active Substance: DICLOFENAC EPOLAMINE
  2. GRALISE [Suspect]
     Active Substance: GABAPENTIN
     Indication: NEUROPATHY PERIPHERAL
     Dosage: (SAMPLE PACK, TITRATED UP TO 1800 MG,  AFTER THE EVENING MEAL)
     Route: 048
     Dates: start: 20150215, end: 201502
  3. ROBAXIN [Concomitant]
     Active Substance: METHOCARBAMOL
  4. GRALISE [Suspect]
     Active Substance: GABAPENTIN
     Indication: PARAESTHESIA
     Dosage: (SAMPLE PACK, TITRATED UP TO 1800 MG,  AFTER THE EVENING MEAL)
     Route: 048
     Dates: start: 20150215, end: 201502
  5. ASPIRIN. [Concomitant]
     Active Substance: ASPIRIN
  6. GRALISE [Suspect]
     Active Substance: GABAPENTIN
     Indication: NEURALGIA
     Dosage: (SAMPLE PACK, TITRATED UP TO 1800 MG,  AFTER THE EVENING MEAL)
     Route: 048
     Dates: start: 20150215, end: 201502
  7. CELEBREX [Concomitant]
     Active Substance: CELECOXIB
  8. GRALISE [Suspect]
     Active Substance: GABAPENTIN
     Indication: OFF LABEL USE
     Dosage: (SAMPLE PACK, TITRATED UP TO 1800 MG,  AFTER THE EVENING MEAL)
     Route: 048
     Dates: start: 20150215, end: 201502
  9. TRAMADOL 50 MG [Suspect]
     Active Substance: TRAMADOL
     Indication: PAIN
     Dosage: (1-2 TABLETS EVERY 4 HOURS, AS NEEDED)
     Route: 048
     Dates: start: 2012, end: 2015

REACTIONS (15)
  - Depression [None]
  - Ear discomfort [None]
  - Headache [None]
  - Dizziness [None]
  - Back pain [None]
  - Migraine [None]
  - Tinnitus [None]
  - Memory impairment [None]
  - Feeling abnormal [None]
  - Pain [None]
  - Depressed mood [None]
  - Confusional state [None]
  - Crying [None]
  - Road traffic accident [None]
  - Balance disorder [None]

NARRATIVE: CASE EVENT DATE: 20150215
